FAERS Safety Report 8582978-8 (Version None)
Quarter: 2012Q3

REPORT INFORMATION
  Report Type: 
  Country: None (occurrence: None)
  Receive Date: 20120727
  Receipt Date: 20120711
  Transmission Date: 20120928
  Serious: Yes (Hospitalization, Disabling)
  Sender: FDA-Public Use
  Company Number: 1349162

PATIENT
  Age: 63 Year
  Sex: Female
  Weight: 34.0198 kg

DRUGS (4)
  1. WARFARIN SODIUM [Concomitant]
  2. CITALOPRAM HYDROBROMIDE [Concomitant]
  3. VANCOMYCIN HCL [Suspect]
     Indication: STAPHYLOCOCCAL INFECTION
     Dosage: 1 G GRAM(S), 1 DAY, INTRAVENOUS (NOT OTHERWISE SPECIFIED)
     Route: 042
     Dates: start: 20110129, end: 20110208
  4. LANSOPRAZOLE [Concomitant]

REACTIONS (8)
  - HAEMODIALYSIS [None]
  - TUBULOINTERSTITIAL NEPHRITIS [None]
  - NEPHROPATHY TOXIC [None]
  - CHROMATURIA [None]
  - DEHYDRATION [None]
  - WEIGHT INCREASED [None]
  - FLUID RETENTION [None]
  - URINARY RETENTION [None]
